FAERS Safety Report 12227989 (Version 2)
Quarter: 2016Q2

REPORT INFORMATION
  Report Type: Spontaneous
  Country: PT (occurrence: PT)
  Receive Date: 20160401
  Receipt Date: 20160512
  Transmission Date: 20160815
  Serious: Yes (Other)
  Sender: FDA-Public Use
  Company Number: PT-ROCHE-1734333

PATIENT
  Age: 77 Year
  Sex: Female
  Weight: 80 kg

DRUGS (7)
  1. DOCETAXEL HOSPIRA [Suspect]
     Active Substance: DOCETAXEL
     Indication: BREAST CANCER
     Dosage: 125MG IN 250 ML OF THE 5% GLUCOSE INFUSION IV OF 1 HOUR IN CYCLES OF 21 DAYS?STRENGTH: 10 MG/ML
     Route: 042
     Dates: start: 20160224
  2. DOXORUBICINA [Concomitant]
     Active Substance: DOXORUBICIN HYDROCHLORIDE
     Indication: BREAST CANCER
     Route: 042
     Dates: end: 20160203
  3. DEXAMETASONA [Concomitant]
     Active Substance: DEXAMETHASONE
     Route: 065
  4. CICLOFOSFAMIDA [Concomitant]
     Active Substance: CYCLOPHOSPHAMIDE
     Indication: BREAST CANCER
     Route: 042
     Dates: end: 20160203
  5. HERCEPTIN [Suspect]
     Active Substance: TRASTUZUMAB
     Indication: BREAST CANCER
     Dosage: 600MG/5ML
     Route: 058
     Dates: start: 20160224
  6. CLEMASTINA [Concomitant]
     Route: 065
  7. ONDANSETROM [Concomitant]
     Route: 065

REACTIONS (3)
  - Anaphylactoid reaction [Recovered/Resolved]
  - Febrile neutropenia [Recovered/Resolved]
  - Infusion site phlebitis [Recovered/Resolved]

NARRATIVE: CASE EVENT DATE: 20160301
